FAERS Safety Report 23330736 (Version 1)
Quarter: 2023Q4

REPORT INFORMATION
  Report Type: Spontaneous
  Country: US (occurrence: US)
  Receive Date: 20231222
  Receipt Date: 20231222
  Transmission Date: 20240110
  Serious: Yes (Other)
  Sender: FDA-Public Use
  Company Number: US-SABAL THERAPEUTICS LLC-2023-ATH-000035

PATIENT

DRUGS (3)
  1. FENOFIBRIC ACID [Suspect]
     Active Substance: FENOFIBRIC ACID
     Indication: Familial partial lipodystrophy
     Route: 065
  2. FISH OIL [Concomitant]
     Active Substance: FISH OIL
     Indication: Familial partial lipodystrophy
     Route: 065
  3. NYSTATIN [Concomitant]
     Active Substance: NYSTATIN
     Indication: Familial partial lipodystrophy
     Route: 065

REACTIONS (2)
  - Blood triglycerides increased [Unknown]
  - Drug ineffective for unapproved indication [Unknown]
